FAERS Safety Report 22829161 (Version 2)
Quarter: 2024Q3

REPORT INFORMATION
  Report Type: Spontaneous
  Country: US (occurrence: US)
  Receive Date: 20230816
  Receipt Date: 20240710
  Transmission Date: 20241017
  Serious: No
  Sender: MYLAN
  Company Number: US-MYLANLABS-2023M1083054

PATIENT
  Age: 71 Year
  Sex: Male
  Weight: 80.7 kg

DRUGS (4)
  1. GABAPENTIN [Suspect]
     Active Substance: GABAPENTIN
     Indication: Pruritus
     Dosage: 1500 MILLIGRAM, QD (600 MG IN THE MORNING, 300 MG IN THE AFTERNOON, 300 MG IN THE EVENING)
     Route: 065
     Dates: start: 20221223, end: 202309
  2. GABAPENTIN [Suspect]
     Active Substance: GABAPENTIN
     Indication: Burning sensation
     Dosage: 100 MILLIGRAM, QD (A DAY )
     Route: 065
  3. FLUDROCORTISONE [Concomitant]
     Active Substance: FLUDROCORTISONE
     Indication: Renal disorder
     Dosage: 0.01 MILLIGRAM (MORNING AND HALF IN THE AFTERNOON)
     Route: 065
     Dates: start: 2003
  4. LEXAPRO [Concomitant]
     Active Substance: ESCITALOPRAM OXALATE
     Dosage: UNK
     Route: 065
     Dates: start: 20221228

REACTIONS (1)
  - Off label use [Unknown]

NARRATIVE: CASE EVENT DATE: 20221223
